FAERS Safety Report 9342145 (Version 1)
Quarter: 2013Q2

REPORT INFORMATION
  Report Type: Spontaneous
  Country: BE (occurrence: BE)
  Receive Date: 20130611
  Receipt Date: 20130611
  Transmission Date: 20140414
  Serious: Yes (Life-Threatening, Other)
  Sender: FDA-Public Use
  Company Number: BE-PFIZER INC-2013126074

PATIENT
  Age: 54 Year
  Sex: Male

DRUGS (5)
  1. LYRICA [Suspect]
     Indication: PAIN
     Dosage: 150 MG, 1X/DAY
     Route: 048
     Dates: start: 20110316, end: 20110511
  2. SIMVASTATIN [Concomitant]
     Dosage: 20 MG, UNK
     Route: 048
  3. L-THYROXIN [Concomitant]
     Dosage: 75 UG, UNK
     Route: 048
  4. DOLZAM [Concomitant]
     Dosage: 400 MG, UNK
     Route: 048
  5. CATAPRESSAN [Concomitant]
     Dosage: 150 UG, UNK
     Route: 048

REACTIONS (2)
  - Suicidal ideation [Recovered/Resolved]
  - Anxiety [Recovered/Resolved]
